FAERS Safety Report 20912677 (Version 1)
Quarter: 2022Q2

REPORT INFORMATION
  Report Type: Spontaneous
  Country: RU (occurrence: None)
  Receive Date: 20220603
  Receipt Date: 20220603
  Transmission Date: 20220721
  Serious: Yes (Life-Threatening, Hospitalization, Other)
  Sender: FDA-Public Use
  Company Number: 2022A208510

PATIENT
  Age: 20295 Day
  Sex: Male
  Weight: 85 kg

DRUGS (1)
  1. IMFINZI [Suspect]
     Active Substance: DURVALUMAB
     Indication: Drug therapy
     Route: 041
     Dates: start: 20220602, end: 20220602

REACTIONS (10)
  - Hypersensitivity [Not Recovered/Not Resolved]
  - Pulmonary oedema [Not Recovered/Not Resolved]
  - Blood pressure increased [Not Recovered/Not Resolved]
  - Face oedema [Unknown]
  - Cyanosis [Unknown]
  - Dyspnoea [Unknown]
  - Oxygen saturation decreased [Recovered/Resolved]
  - Heart rate increased [Unknown]
  - Foaming at mouth [Unknown]
  - Cough [Unknown]

NARRATIVE: CASE EVENT DATE: 20220602
